FAERS Safety Report 9130803 (Version 1)
Quarter: 2013Q1

REPORT INFORMATION
  Report Type: Spontaneous
  Country: US (occurrence: US)
  Receive Date: 20130301
  Receipt Date: 20130301
  Transmission Date: 20140127
  Serious: Yes (Other)
  Sender: FDA-Public Use
  Company Number: US-JNJFOC-20130214996

PATIENT
  Sex: Female

DRUGS (5)
  1. REMICADE [Suspect]
     Indication: CROHN^S DISEASE
     Route: 042
  2. AMBIEN [Concomitant]
     Indication: SLEEP DISORDER
     Route: 065
  3. TRAZODONE [Concomitant]
     Indication: DEPRESSION
     Route: 065
  4. HORMONE THERAPY [Concomitant]
     Route: 065
  5. VITAMIN B12 [Concomitant]
     Route: 065

REACTIONS (3)
  - Neuropathy peripheral [Unknown]
  - Small intestinal resection [Unknown]
  - Colectomy [Unknown]
